FAERS Safety Report 14185814 (Version 1)
Quarter: 2017Q4

REPORT INFORMATION
  Report Type: Spontaneous
  Country: US (occurrence: US)
  Receive Date: 20171112
  Receipt Date: 20171112
  Transmission Date: 20180321
  Serious: Yes (Other)
  Sender: FDA-Public Use
  Company Number: None

PATIENT
  Sex: Female
  Weight: 68.85 kg

DRUGS (4)
  1. BURPROPION HCL ER 12HR 150 MG TAB SOLC [Suspect]
     Active Substance: BUPROPION HYDROCHLORIDE
     Indication: WEIGHT DECREASED
     Dosage: ?          QUANTITY:60 TABLET(S);?
     Route: 048
     Dates: start: 20171108, end: 20171111
  2. WELLBUTRIN [Concomitant]
     Active Substance: BUPROPION HYDROCHLORIDE
  3. BURPROPION HCL ER 12HR 150 MG TAB SOLC [Suspect]
     Active Substance: BUPROPION HYDROCHLORIDE
     Indication: DEPRESSION
     Dosage: ?          QUANTITY:60 TABLET(S);?
     Route: 048
     Dates: start: 20171108, end: 20171111
  4. BURPROPION HCL ER 12HR 150 MG TAB SOLC [Suspect]
     Active Substance: BUPROPION HYDROCHLORIDE
     Indication: SMOKING CESSATION THERAPY
     Dosage: ?          QUANTITY:60 TABLET(S);?
     Route: 048
     Dates: start: 20171108, end: 20171111

REACTIONS (11)
  - Pyrexia [None]
  - Swelling face [None]
  - Pruritus [None]
  - Burning sensation [None]
  - Urticaria [None]
  - Middle insomnia [None]
  - Diarrhoea [None]
  - Hyperhidrosis [None]
  - Feeling hot [None]
  - Therapy change [None]
  - Eyelid oedema [None]

NARRATIVE: CASE EVENT DATE: 20171111
